FAERS Safety Report 16012872 (Version 2)
Quarter: 2019Q2

REPORT INFORMATION
  Report Type: Report from Study
  Country: None (occurrence: US)
  Receive Date: 20190227
  Receipt Date: 20190404
  Transmission Date: 20190711
  Serious: Yes (Other)
  Sender: FDA-Public Use
  Company Number: US-ABBVIE-19K-163-2674755-00

PATIENT
  Age: 66 Year
  Sex: Male
  Weight: 129.39 kg

DRUGS (3)
  1. DECITABINE. [Concomitant]
     Active Substance: DECITABINE
     Indication: ACUTE MYELOID LEUKAEMIA
  2. VENCLEXTA [Suspect]
     Active Substance: VENETOCLAX
     Indication: ACUTE MYELOID LEUKAEMIA
     Route: 048
     Dates: start: 20190130
  3. ACYCLOVIR. [Concomitant]
     Active Substance: ACYCLOVIR
     Indication: ANTIVIRAL PROPHYLAXIS

REACTIONS (5)
  - Erythema [Unknown]
  - Vascular device infection [Unknown]
  - Central venous catheterisation [Unknown]
  - Thrombosis in device [Unknown]
  - Peripheral swelling [Unknown]

NARRATIVE: CASE EVENT DATE: 2019
